FAERS Safety Report 8517100-7 (Version None)
Quarter: 2012Q3

REPORT INFORMATION
  Report Type: 
  Country: None (occurrence: None)
  Receive Date: 20120706
  Receipt Date: 20120627
  Transmission Date: 20120928
  Serious: Yes (Hospitalization, Other)
  Sender: FDA-Public Use
  Company Number: AUR-APL-2012-01128

PATIENT
  Age: 48 Year
  Sex: Male

DRUGS (9)
  1. OLANZAPINE [Concomitant]
  2. PROCYCLIDINE HYDROCHLORIDE 2MG TAB [Concomitant]
  3. CLOZARIL [Suspect]
     Indication: SCHIZOPHRENIA
     Dosage: (350 MG), ORAL
     Route: 048
     Dates: start: 20070220
  4. CLOZARIL [Suspect]
     Indication: SCHIZOPHRENIA
     Dosage: (350 MG), ORAL
     Route: 048
     Dates: start: 20101110, end: 20120119
  5. PIRENZEPINE (PIRENZEPINE) [Suspect]
     Indication: SALIVARY HYPERSECRETION
     Dosage: 150 MG (50 MG,3 IN 1 D), ORAL
     Route: 048
     Dates: start: 20100608, end: 20120120
  6. RISPERIDONE [Suspect]
     Indication: PRODUCT USED FOR UNKNOWN INDICATION
     Dosage: 2 MG (1 MG, 2 IN 1 D), ORAL
     Route: 048
     Dates: start: 20100608, end: 20120127
  7. SIMVASTATIN [Concomitant]
  8. VALPROIC ACID [Concomitant]
  9. CITALOPRAM [Concomitant]

REACTIONS (9)
  - WHITE BLOOD CELL COUNT DECREASED [None]
  - SALIVARY HYPERSECRETION [None]
  - HEPATITIS C VIRUS TEST POSITIVE [None]
  - THROMBOCYTOPENIA [None]
  - SELF-INJURIOUS IDEATION [None]
  - MENTAL IMPAIRMENT [None]
  - EOSINOPHIL COUNT DECREASED [None]
  - NEUTROPENIA [None]
  - PSYCHOTIC DISORDER [None]
